FAERS Safety Report 7773940-3 (Version None)
Quarter: 2011Q3

REPORT INFORMATION
  Report Type: 
  Country: None (occurrence: None)
  Receive Date: 20110923
  Receipt Date: 20110911
  Transmission Date: 20111222
  Serious: No
  Sender: FDA-Public Use
  Company Number: US-B.I. PHARMACEUTICALS,INC./RIDGEFIELD-2011-BP-21948BP

PATIENT
  Age: 79 Year
  Sex: Female

DRUGS (6)
  1. SPIRONOLACTONE [Suspect]
     Indication: HYPERTENSION
     Dates: start: 20110825
  2. FUROSEMIDE [Suspect]
     Indication: HYPERTENSION
     Dates: start: 20110825
  3. DILTIAZEM [Suspect]
     Indication: HYPERTENSION
     Dates: start: 20110825
  4. LEVOTHYROXINE SODIUM [Concomitant]
     Indication: THYROID DISORDER
     Dates: start: 20070101
  5. LISINOPRIL [Suspect]
     Indication: HYPERTENSION
     Dates: start: 20110825
  6. PRADAXA [Suspect]
     Indication: ATRIAL FIBRILLATION
     Dosage: 300 MG
     Route: 048
     Dates: start: 20110825

REACTIONS (3)
  - COUGH [None]
  - MUSCULOSKELETAL DISCOMFORT [None]
  - INCREASED UPPER AIRWAY SECRETION [None]
